FAERS Safety Report 7659556-8 (Version None)
Quarter: 2011Q3

REPORT INFORMATION
  Report Type: 
  Country: None (occurrence: None)
  Receive Date: 20110805
  Receipt Date: 20110802
  Transmission Date: 20111222
  Serious: Yes (Life-Threatening, Hospitalization)
  Sender: FDA-Public Use
  Company Number: NL-BAYER-2011-061620

PATIENT
  Age: 71 Year
  Sex: Male
  Weight: 75 kg

DRUGS (2)
  1. AVELOX [Suspect]
     Indication: RESPIRATORY TRACT INFECTION
  2. AVELOX [Suspect]
     Indication: CHRONIC OBSTRUCTIVE PULMONARY DISEASE
     Dosage: 1 DF, QD
     Route: 048
     Dates: start: 20110709

REACTIONS (13)
  - SWOLLEN TONGUE [None]
  - CYANOSIS [None]
  - CIRCULATORY COLLAPSE [None]
  - ANAPHYLACTIC REACTION [None]
  - PHARYNGEAL OEDEMA [None]
  - COMA [None]
  - GAIT DISTURBANCE [None]
  - PRURITUS [None]
  - SYNCOPE [None]
  - RASH ERYTHEMATOUS [None]
  - ERYTHEMA [None]
  - LOSS OF CONSCIOUSNESS [None]
  - FATIGUE [None]
